FAERS Safety Report 25056525 (Version 2)
Quarter: 2025Q2

REPORT INFORMATION
  Report Type: Spontaneous
  Country: US (occurrence: US)
  Receive Date: 20250310
  Receipt Date: 20250416
  Transmission Date: 20250716
  Serious: No
  Sender: JOHNSON AND JOHNSON
  Company Number: US-JNJFOC-20250244089

PATIENT
  Age: 77 Year
  Sex: Male

DRUGS (2)
  1. GUSELKUMAB [Suspect]
     Active Substance: GUSELKUMAB
     Indication: Arthritis
     Dates: start: 20250213, end: 20250213
  2. GUSELKUMAB [Suspect]
     Active Substance: GUSELKUMAB
     Dates: start: 20250213, end: 20250213

REACTIONS (3)
  - Needle issue [Unknown]
  - Product label issue [Unknown]
  - Product dose omission issue [Unknown]

NARRATIVE: CASE EVENT DATE: 20250213
